FAERS Safety Report 20966386 (Version 1)
Quarter: 2022Q2

REPORT INFORMATION
  Report Type: Spontaneous
  Country: US (occurrence: None)
  Receive Date: 20220615
  Receipt Date: 20220615
  Transmission Date: 20220721
  Serious: Yes (Hospitalization)
  Sender: FDA-Public Use
  Company Number: None

PATIENT
  Age: 12 Year
  Sex: Female

DRUGS (4)
  1. PULMOZYME [Suspect]
     Active Substance: DORNASE ALFA
  2. FLOVENT HFA [Concomitant]
  3. SODIUM CHLOR NEB [Concomitant]
  4. TRIKAFTA [Concomitant]

REACTIONS (1)
  - Cystic fibrosis [None]

NARRATIVE: CASE EVENT DATE: 20220511
